FAERS Safety Report 10504534 (Version 1)
Quarter: 2014Q4

REPORT INFORMATION
  Report Type: Report from Study
  Country: US (occurrence: US)
  Receive Date: 20141008
  Receipt Date: 20141008
  Transmission Date: 20150528
  Serious: Yes (Other)
  Sender: FDA-Public Use
  Company Number: PHEH2014US019182

PATIENT
  Sex: Male

DRUGS (2)
  1. ILARIS [Suspect]
     Active Substance: CANAKINUMAB
     Indication: PRODUCT USED FOR UNKNOWN INDICATION
     Dosage: 90 MG, EVERY SIX WEEKS
     Route: 058
  2. ILARIS [Suspect]
     Active Substance: CANAKINUMAB
     Dosage: 90 MG, EVERY 5 WEEKS
     Route: 058

REACTIONS (5)
  - Condition aggravated [Recovered/Resolved]
  - Weight increased [Recovering/Resolving]
  - Vomiting [Recovering/Resolving]
  - Bone swelling [Recovering/Resolving]
  - Pyrexia [Recovering/Resolving]
